FAERS Safety Report 5826506-6 (Version None)
Quarter: 2008Q3

REPORT INFORMATION
  Report Type: 
  Country: None (occurrence: None)
  Receive Date: 20080723
  Receipt Date: 20080714
  Transmission Date: 20090109
  Serious: Yes (Other)
  Sender: FDA-Public Use
  Company Number: 030889

PATIENT

DRUGS (6)
  1. CARBOPLATIN [Suspect]
     Indication: CHEMOTHERAPY
     Dosage: UNKNOWN HIGH DOSE (ONE CYCLE),
  2. CISPLATIN [Suspect]
     Indication: CHEMOTHERAPY
     Dosage: FOUR CYCLES; ONE CYCLE;
  3. BLEOMYCIN SULFATE [Suspect]
     Dosage: FOUR CYCLES;
  4. ETOPOSIDE [Suspect]
     Dosage: FOUR CYCLES;
  5. VINBLASTINE SULFATE [Suspect]
     Indication: CHEMOTHERAPY
     Dosage: ONE CYCLE,
  6. IFOSFAMIDE [Suspect]
     Indication: CHEMOTHERAPY
     Dosage: ONE CYCLE;

REACTIONS (8)
  - AMNESIA [None]
  - CHORIOCARCINOMA [None]
  - CONVULSION [None]
  - NECROSIS [None]
  - NERVOUS SYSTEM DISORDER [None]
  - NEUROTOXICITY [None]
  - PARAESTHESIA [None]
  - PROGRESSIVE MULTIFOCAL LEUKOENCEPHALOPATHY [None]
